FAERS Safety Report 9736970 (Version 1)
Quarter: 2013Q4

REPORT INFORMATION
  Report Type: Spontaneous
  Country: US (occurrence: US)
  Receive Date: 20131206
  Receipt Date: 20131206
  Transmission Date: 20140711
  Serious: No
  Sender: FDA-Public Use
  Company Number: US-GILEAD-2009-0022651

PATIENT
  Age: 68 Year
  Sex: Female

DRUGS (12)
  1. LETAIRIS [Suspect]
     Indication: PULMONARY ARTERIAL HYPERTENSION
     Route: 048
     Dates: start: 20090521
  2. VENTAVIS [Concomitant]
  3. COUMADIN [Concomitant]
  4. FUROSEMIDE [Concomitant]
  5. MAVIK [Concomitant]
  6. NADOLOL [Concomitant]
  7. DIGOXIN [Concomitant]
  8. ALBUTEROL [Concomitant]
  9. SIMVASTATIN [Concomitant]
  10. SINGULAIR [Concomitant]
  11. ZOLOFT [Concomitant]
  12. NEXIUM [Concomitant]

REACTIONS (2)
  - Oedema peripheral [Not Recovered/Not Resolved]
  - Weight increased [Not Recovered/Not Resolved]
